FAERS Safety Report 8824329 (Version 4)
Quarter: 2013Q2

REPORT INFORMATION
  Report Type: Spontaneous
  Country: TR (occurrence: TR)
  Receive Date: 20121004
  Receipt Date: 20130617
  Transmission Date: 20140414
  Serious: Yes (Hospitalization, Other)
  Sender: FDA-Public Use
  Company Number: TR-AMGEN-TURSP2012062468

PATIENT
  Age: 44 Year
  Sex: Female

DRUGS (5)
  1. ENBREL [Suspect]
     Indication: RHEUMATOID ARTHRITIS
     Dosage: 50 MG, WEEKLY
     Route: 058
     Dates: start: 20120314
  2. DELTACORTRIL                       /00016201/ [Concomitant]
     Indication: RHEUMATOID ARTHRITIS
     Dosage: 5 MG, 2X/DAY
     Route: 048
  3. RANTUDIL [Concomitant]
     Indication: RHEUMATOID ARTHRITIS
     Dosage: UNK,2X/DAILY
     Route: 048
  4. METHOTREXATE [Concomitant]
     Indication: RHEUMATOID ARTHRITIS
     Dosage: 6 TABLETS ONCE IN WEEKLY
     Route: 048
  5. PLAQUENIL                          /00072602/ [Concomitant]
     Indication: RHEUMATOID ARTHRITIS
     Dosage: UNK, 1X/DAY
     Route: 048

REACTIONS (6)
  - Local swelling [Recovered/Resolved]
  - Cellulitis [Recovered/Resolved]
  - Injection site swelling [Not Recovered/Not Resolved]
  - Skin fissures [Unknown]
  - Injection site pruritus [Recovered/Resolved]
  - Sinusitis [Not Recovered/Not Resolved]
